FAERS Safety Report 8534952-5 (Version None)
Quarter: 2012Q3

REPORT INFORMATION
  Report Type: 
  Country: None (occurrence: None)
  Receive Date: 20120724
  Receipt Date: 20120716
  Transmission Date: 20120928
  Serious: No
  Sender: FDA-Public Use
  Company Number: US-PFIZER INC-2012172127

PATIENT
  Age: 53 Year
  Sex: Female

DRUGS (1)
  1. LO/OVRAL-28 [Suspect]
     Indication: ENDOMETRIOSIS
     Dosage: 1 DF, 1X/DAY

REACTIONS (3)
  - DYSMENORRHOEA [None]
  - OFF LABEL USE [None]
  - METRORRHAGIA [None]
